FAERS Safety Report 9861341 (Version 4)
Quarter: 2014Q2

REPORT INFORMATION
  Report Type: Report from Study
  Country: TH (occurrence: TH)
  Receive Date: 20140203
  Receipt Date: 20140602
  Transmission Date: 20141212
  Serious: Yes (Hospitalization)
  Sender: FDA-Public Use
  Company Number: TH-ROCHE-1341425

PATIENT
  Age: 57 Year
  Sex: Female
  Weight: 42 kg

DRUGS (6)
  1. TRASTUZUMAB [Suspect]
     Indication: BREAST CANCER
     Dosage: LOADING DOSE
     Route: 042
     Dates: start: 20130523, end: 20130523
  2. TRASTUZUMAB [Suspect]
     Dosage: LAST DOSE PRIOR TO SAE ON 08 JAN 2014, MAINTAINANCE DOSE
     Route: 042
     Dates: end: 20140128
  3. CAPECITABINE [Suspect]
     Indication: BREAST CANCER
     Dosage: LAST DOSE PRIOR TO AE ONSET ON 23/JAN/2014
     Route: 048
     Dates: start: 20130523, end: 20140128
  4. PERTUZUMAB [Suspect]
     Indication: BREAST CANCER
     Dosage: LOADING DOSE
     Route: 042
     Dates: start: 20130522, end: 20130522
  5. PERTUZUMAB [Suspect]
     Dosage: LAST DOSE PRIOR TO SAE 08/JAN/2014, MAINTAINANCE DOSE
     Route: 042
     Dates: end: 20140128
  6. DOXORUBICIN [Suspect]
     Indication: BREAST CANCER
     Route: 065

REACTIONS (1)
  - Left ventricular dysfunction [Recovered/Resolved with Sequelae]
